FAERS Safety Report 8646251 (Version 2)
Quarter: 2013Q2

REPORT INFORMATION
  Report Type: Spontaneous
  Country: JP (occurrence: JP)
  Receive Date: 20120702
  Receipt Date: 20130403
  Transmission Date: 20140414
  Serious: Yes (Hospitalization)
  Sender: FDA-Public Use
  Company Number: JP-JNJFOC-20120608131

PATIENT
  Age: 52 Year
  Sex: Female

DRUGS (7)
  1. PREZISTA [Suspect]
     Indication: HIV INFECTION
     Route: 048
     Dates: start: 20080228, end: 20091220
  2. PREZISTA [Suspect]
     Indication: HIV INFECTION
     Route: 048
     Dates: start: 20100109
  3. NORVIR [Concomitant]
     Indication: HIV INFECTION
     Route: 048
     Dates: start: 20080228, end: 20091220
  4. NORVIR [Concomitant]
     Indication: HIV INFECTION
     Route: 048
  5. EPZICOM [Concomitant]
     Indication: HIV INFECTION
     Route: 048
     Dates: start: 200705, end: 20081220
  6. EPZICOM [Concomitant]
     Indication: HIV INFECTION
     Route: 048
     Dates: start: 20100109
  7. TRUVADA [Concomitant]
     Indication: HIV INFECTION
     Route: 048

REACTIONS (4)
  - VIIth nerve paralysis [Recovered/Resolved]
  - Drug ineffective [Recovering/Resolving]
  - Wrong technique in drug usage process [Unknown]
  - Headache [Recovered/Resolved]
